FAERS Safety Report 23189674 (Version 5)
Quarter: 2023Q4

REPORT INFORMATION
  Report Type: Other
  Country: CA (occurrence: None)
  Receive Date: 20231116
  Receipt Date: 20231214
  Transmission Date: 20240110
  Serious: No
  Sender: FDA-Public Use
  Company Number: CA-ROCHE-3458001

PATIENT
  Sex: Female

DRUGS (4)
  1. OCREVUS [Suspect]
     Active Substance: OCRELIZUMAB
     Indication: Relapsing-remitting multiple sclerosis
     Dosage: 300 MG AT DAY 0 AND 14, THEN 600 MG EVERY 6 MONTH
     Route: 042
     Dates: start: 20221111
  2. PREGABALIN [Concomitant]
     Active Substance: PREGABALIN
  3. CELECOXIB [Concomitant]
     Active Substance: CELECOXIB
  4. VALACYCLOVIR [Concomitant]
     Active Substance: VALACYCLOVIR HYDROCHLORIDE
     Dosage: 7 DAYS

REACTIONS (3)
  - Herpes zoster [Not Recovered/Not Resolved]
  - Pain [Recovering/Resolving]
  - Nervous system disorder [Not Recovered/Not Resolved]
